FAERS Safety Report 9240323 (Version 1)
Quarter: 2013Q2

REPORT INFORMATION
  Report Type: Spontaneous
  Country: AU (occurrence: AU)
  Receive Date: 20130418
  Receipt Date: 20130418
  Transmission Date: 20140414
  Serious: Yes (Death, Hospitalization, Other)
  Sender: FDA-Public Use
  Company Number: AU-ROXANE LABORATORIES, INC.-2013-RO-00485RO

PATIENT
  Age: 57 Year
  Sex: Male

DRUGS (15)
  1. MYCOPHENOLATE MOFETIL [Suspect]
     Indication: RENAL TRANSPLANT
     Dosage: 2 G
  2. MYCOPHENOLATE MOFETIL [Suspect]
     Dosage: 1500 MG
     Dates: start: 201105
  3. MYCOPHENOLATE MOFETIL [Suspect]
     Dosage: 500 MG
     Dates: start: 201106
  4. PREDNISONE [Suspect]
     Indication: RENAL TRANSPLANT
     Dosage: 10 MG
  5. PREDNISONE [Suspect]
     Dosage: 15 MG
     Dates: start: 201105
  6. CLARITHROMYCIN [Suspect]
     Indication: RHODOCOCCUS INFECTION
     Route: 048
  7. TACROLIMUS [Suspect]
     Indication: RENAL TRANSPLANT
     Dosage: 8 MG
  8. AZITHROMYCIN [Suspect]
     Indication: RHODOCOCCUS INFECTION
     Route: 042
  9. TRIMETHOPRIM-SULFAMETHOXAZOLE [Suspect]
     Indication: RHODOCOCCUS INFECTION
     Route: 048
  10. MEROPENEM [Suspect]
     Indication: RHODOCOCCUS INFECTION
     Route: 042
  11. MOXIFLOXACIN [Suspect]
     Indication: RHODOCOCCUS INFECTION
     Route: 048
  12. ERTAPENEM [Suspect]
     Indication: RHODOCOCCUS INFECTION
     Route: 042
  13. DOXYCYCLINE [Suspect]
     Indication: RHODOCOCCUS INFECTION
     Route: 048
  14. VANCOMYCIN [Suspect]
     Indication: RHODOCOCCUS INFECTION
     Route: 042
  15. LINEZOLID [Suspect]
     Indication: RHODOCOCCUS INFECTION
     Route: 048

REACTIONS (9)
  - Pneumocystis jirovecii pneumonia [Fatal]
  - Rhodococcus infection [Recovered/Resolved]
  - Renal impairment [Recovered/Resolved]
  - Tubulointerstitial nephritis [Unknown]
  - Nephropathy toxic [Unknown]
  - Ototoxicity [Recovered/Resolved]
  - Cardiac vein perforation [Unknown]
  - Bone marrow failure [Recovered/Resolved]
  - Respiratory distress [Unknown]
